FAERS Safety Report 6134869-X (Version None)
Quarter: 2009Q1

REPORT INFORMATION
  Report Type: 
  Country: None (occurrence: None)
  Receive Date: 20090327
  Receipt Date: 20090317
  Transmission Date: 20090719
  Serious: Yes (Hospitalization)
  Sender: FDA-Public Use
  Company Number: FR-PFIZER INC-2009185582

PATIENT

DRUGS (4)
  1. AMLOR [Suspect]
     Dosage: 5 MG, 1X/DAY
     Route: 048
  2. ALDACTAZINE [Interacting]
     Dosage: 1 DF, UNK
     Route: 048
  3. HEXAQUINE [Concomitant]
  4. KARDEGIC [Concomitant]

REACTIONS (3)
  - DRUG INTERACTION [None]
  - FALL [None]
  - FEMUR FRACTURE [None]
